FAERS Safety Report 9344366 (Version 1)
Quarter: 2013Q2

REPORT INFORMATION
  Report Type: Spontaneous
  Country: US (occurrence: US)
  Receive Date: 20130612
  Receipt Date: 20130612
  Transmission Date: 20140414
  Serious: No
  Sender: FDA-Public Use
  Company Number: US-TEVA-2009029437

PATIENT
  Age: 69 Year
  Sex: Male

DRUGS (1)
  1. FENTORA [Suspect]
     Route: 002

REACTIONS (1)
  - Medication error [Unknown]
